FAERS Safety Report 18384258 (Version 5)
Quarter: 2021Q1

REPORT INFORMATION
  Report Type: Report from Study
  Country: FR (occurrence: FR)
  Receive Date: 20201015
  Receipt Date: 20210108
  Transmission Date: 20210419
  Serious: Yes (Hospitalization)
  Sender: FDA-Public Use
  Company Number: NVSC2020FR273541

PATIENT
  Age: 48 Year
  Sex: Female
  Weight: 90 kg

DRUGS (6)
  1. MOBIC [Concomitant]
     Active Substance: MELOXICAM
     Indication: PSORIATIC ARTHROPATHY
     Dosage: 15 MG, UNKNOWN
     Route: 065
     Dates: start: 20081210
  2. ERELZI [Suspect]
     Active Substance: ETANERCEPT-SZZS
     Dosage: UNK
     Route: 065
     Dates: end: 202009
  3. SALZONE [Concomitant]
     Indication: PSORIATIC ARTHROPATHY
     Dosage: 2 G, UNKNOWN
     Route: 065
     Dates: start: 20100415
  4. ERELZI [Suspect]
     Active Substance: ETANERCEPT-SZZS
     Indication: PSORIATIC ARTHROPATHY
     Dosage: 50 MG, QD
     Route: 058
     Dates: start: 20190610, end: 20200918
  5. METOJECT [Concomitant]
     Active Substance: METHOTREXATE SODIUM
     Indication: PSORIATIC ARTHROPATHY
     Dosage: 20 MG, UNKNOWN
     Route: 065
     Dates: start: 20160730
  6. SALAZOPRIN [Concomitant]
     Indication: PSORIATIC ARTHROPATHY
     Dosage: 2 MG, UNKNOWN
     Route: 065
     Dates: start: 20100412

REACTIONS (3)
  - Cyst [Recovered/Resolved]
  - Dyspnoea [Recovered/Resolved]
  - COVID-19 [Recovered/Resolved]

NARRATIVE: CASE EVENT DATE: 20190917
